FAERS Safety Report 8336326 (Version 2)
Quarter: 2015Q1

REPORT INFORMATION
  Report Type: Report from Study
  Country: US (occurrence: US)
  Receive Date: 20120113
  Receipt Date: 20150223
  Transmission Date: 20150721
  Serious: Yes (Death)
  Sender: FDA-Public Use
  Company Number: US-ROCHE-1028206

PATIENT
  Sex: Female

DRUGS (17)
  1. ZOFRAN [Concomitant]
     Active Substance: ONDANSETRON HYDROCHLORIDE
     Route: 065
  2. GEMZAR [Concomitant]
     Active Substance: GEMCITABINE HYDROCHLORIDE
     Route: 065
  3. CAMPTOTHECIN [Concomitant]
     Active Substance: CAMPTOTHECIN
     Route: 065
  4. AVASTIN [Suspect]
     Active Substance: BEVACIZUMAB
     Route: 042
  5. ELOXATIN [Concomitant]
     Active Substance: OXALIPLATIN
     Route: 042
  6. 5-FLUOROURACIL [Concomitant]
     Active Substance: FLUOROURACIL
     Route: 065
  7. ALOXI [Concomitant]
     Active Substance: PALONOSETRON HYDROCHLORIDE
     Route: 065
  8. IRON DEXTRAN [Concomitant]
     Active Substance: IRON DEXTRAN
     Route: 065
  9. ABRAXANE [Concomitant]
     Active Substance: PACLITAXEL
     Route: 042
  10. AVASTIN [Suspect]
     Active Substance: BEVACIZUMAB
     Indication: PANCREATIC CARCINOMA
     Route: 042
  11. ABRAXANE [Concomitant]
     Active Substance: PACLITAXEL
     Route: 042
  12. DEXAMETHASONE. [Concomitant]
     Active Substance: DEXAMETHASONE
     Route: 065
  13. LORAZEPAM. [Concomitant]
     Active Substance: LORAZEPAM
     Route: 065
  14. ABRAXANE [Concomitant]
     Active Substance: PACLITAXEL
     Route: 042
  15. LEUCOVORIN [Concomitant]
     Active Substance: LEUCOVORIN
     Route: 065
  16. CISPLATIN. [Concomitant]
     Active Substance: CISPLATIN
     Route: 065
  17. TAXOL [Concomitant]
     Active Substance: PACLITAXEL

REACTIONS (2)
  - Off label use [Unknown]
  - Death [Fatal]
